FAERS Safety Report 13496416 (Version 3)
Quarter: 2017Q4

REPORT INFORMATION
  Report Type: Report from Study
  Country: RU (occurrence: RU)
  Receive Date: 20170428
  Receipt Date: 20171214
  Transmission Date: 20180320
  Serious: Yes (Life-Threatening, Hospitalization)
  Sender: FDA-Public Use
  Company Number: RU-JNJFOC-20170401860

PATIENT
  Age: 66 Year
  Sex: Male
  Weight: 91.1 kg

DRUGS (8)
  1. PREDNISONE. [Suspect]
     Active Substance: PREDNISONE
     Indication: METASTASES TO BONE
     Route: 048
     Dates: start: 20161107, end: 20161207
  2. ABIRATERONE ACETATE. [Suspect]
     Active Substance: ABIRATERONE ACETATE
     Indication: METASTASES TO BONE
     Route: 048
     Dates: start: 20161107, end: 20161207
  3. ASPIRIN CARDIO [Concomitant]
     Active Substance: ASPIRIN
     Indication: CARDIOVASCULAR EVENT PROPHYLAXIS
     Route: 048
     Dates: start: 2015
  4. PLACEBO [Suspect]
     Active Substance: UNSPECIFIED INGREDIENT
     Indication: PROSTATE CANCER STAGE IV
     Route: 042
     Dates: start: 20161107, end: 20161107
  5. PLACEBO [Suspect]
     Active Substance: UNSPECIFIED INGREDIENT
     Indication: METASTASES TO BONE
     Route: 042
     Dates: start: 20161107, end: 20161107
  6. PREDNISONE. [Suspect]
     Active Substance: PREDNISONE
     Indication: PROSTATE CANCER STAGE IV
     Route: 048
     Dates: start: 20161107, end: 20161207
  7. ABIRATERONE ACETATE. [Suspect]
     Active Substance: ABIRATERONE ACETATE
     Indication: PROSTATE CANCER STAGE IV
     Route: 048
     Dates: start: 20161107, end: 20161207
  8. KREON [Concomitant]
     Active Substance: PANCRELIPASE
     Indication: POST CHOLECYSTECTOMY SYNDROME
     Route: 048
     Dates: start: 2016

REACTIONS (1)
  - Acute myocardial infarction [Recovered/Resolved with Sequelae]

NARRATIVE: CASE EVENT DATE: 20161126
